FAERS Safety Report 5474415-7 (Version None)
Quarter: 2007Q3

REPORT INFORMATION
  Report Type: 
  Country: None (occurrence: None)
  Receive Date: 20070928
  Receipt Date: 20070928
  Transmission Date: 20080115
  Serious: Yes (Life-Threatening, Other)
  Sender: FDA-Public Use
  Company Number: None

PATIENT
  Sex: Female
  Weight: 62.1428 kg

DRUGS (2)
  1. ZICAM   0.05% OXYMETAZOLINE  ZICAM INTENSE SINUS RELIEF [Suspect]
     Indication: NASAL CONGESTION
     Dosage: ONE SPRAY EA NOSTRIL  Q12HRS  NASAL
     Route: 045
     Dates: start: 20060701, end: 20070927
  2. ZICAM   0.05% OXYMETAZOLINE  ZICAM INTENSE SINUS RELIEF [Suspect]
     Indication: NASOPHARYNGITIS
     Dosage: ONE SPRAY EA NOSTRIL  Q12HRS  NASAL
     Route: 045
     Dates: start: 20060701, end: 20070927

REACTIONS (4)
  - ARRHYTHMIA [None]
  - MEDICATION ERROR [None]
  - NASOPHARYNGITIS [None]
  - PHARMACEUTICAL PRODUCT COMPLAINT [None]
